FAERS Safety Report 17134016 (Version 1)
Quarter: 2019Q4

REPORT INFORMATION
  Report Type: Spontaneous
  Country: US (occurrence: US)
  Receive Date: 20191209
  Receipt Date: 20191209
  Transmission Date: 20200122
  Serious: Yes (Death)
  Sender: FDA-Public Use
  Company Number: None

PATIENT
  Age: 78 Year
  Sex: Female

DRUGS (5)
  1. PHENYTOIN. [Concomitant]
     Active Substance: PHENYTOIN
  2. CALCIUM [Concomitant]
     Active Substance: CALCIUM
  3. TASIGNA [Suspect]
     Active Substance: NILOTINIB
     Route: 048
     Dates: start: 20180207
  4. VIT D [Concomitant]
     Active Substance: VITAMIN D NOS
  5. BENADRYL [Concomitant]
     Active Substance: DIPHENHYDRAMINE HYDROCHLORIDE

REACTIONS (1)
  - Death [None]
